FAERS Safety Report 5233740-5 (Version None)
Quarter: 2007Q1

REPORT INFORMATION
  Report Type: 
  Country: None (occurrence: None)
  Receive Date: 20061208
  Receipt Date: 20060727
  Transmission Date: 20070707
  Serious: Yes (Other)
  Sender: FDA-Public Use
  Company Number: 2006UW15208

PATIENT
  Age: 63 Year
  Sex: Female
  Weight: 75.749 kg

DRUGS (5)
  1. CRESTOR [Suspect]
     Indication: BLOOD CHOLESTEROL INCREASED
     Dosage: 10 MG PO
     Route: 048
     Dates: start: 20060201
  2. CRESTOR [Suspect]
     Indication: BLOOD TRIGLYCERIDES INCREASED
     Dosage: 10 MG PO
     Route: 048
     Dates: start: 20060201
  3. OMACOR [Suspect]
     Dosage: 10 MG PO
     Route: 048
     Dates: start: 20060201
  4. SYNTHROID [Concomitant]
  5. NIASPAN [Concomitant]

REACTIONS (3)
  - ABDOMINAL DISTENSION [None]
  - HEPATIC ENZYME INCREASED [None]
  - MYALGIA [None]
